FAERS Safety Report 7785759-8 (Version None)
Quarter: 2011Q3

REPORT INFORMATION
  Report Type: 
  Country: None (occurrence: None)
  Receive Date: 20110929
  Receipt Date: 20110922
  Transmission Date: 20111222
  Serious: Yes (Hospitalization, Other)
  Sender: FDA-Public Use
  Company Number: IE-PURDUE-GBR-2010-0007326

PATIENT
  Sex: Male

DRUGS (3)
  1. LYRICA [Concomitant]
  2. OXYCODONE HCL [Suspect]
     Indication: NEURALGIA
     Dosage: 60 MG, DAILY
  3. OXYCONTIN [Suspect]
     Indication: NEURALGIA
     Dosage: 120 MG, DAILY

REACTIONS (5)
  - CONSTIPATION [None]
  - MEMORY IMPAIRMENT [None]
  - VASCULAR STENOSIS [None]
  - ULCER [None]
  - DYSPNOEA [None]
